FAERS Safety Report 8443871-4 (Version None)
Quarter: 2012Q2

REPORT INFORMATION
  Report Type: 
  Country: None (occurrence: None)
  Receive Date: 20120618
  Receipt Date: 20120613
  Transmission Date: 20120825
  Serious: No
  Sender: FDA-Public Use
  Company Number: US-PFIZER INC-2012100664

PATIENT
  Sex: Female
  Weight: 107 kg

DRUGS (4)
  1. DICLOFENAC [Concomitant]
     Indication: LYMPHOEDEMA
  2. LYRICA [Suspect]
     Indication: FIBROMYALGIA
     Dosage: 50 MG, 4X/DAY
     Dates: start: 20111201
  3. DICLOFENAC [Concomitant]
     Indication: ARTHRITIS
     Dosage: 75 MG, 2X/DAY
  4. LYRICA [Suspect]
     Indication: NEURALGIA

REACTIONS (4)
  - BURNING SENSATION [None]
  - HYPOAESTHESIA [None]
  - NERVE INJURY [None]
  - NEURALGIA [None]
